FAERS Safety Report 7057209-0 (Version None)
Quarter: 2010Q4

REPORT INFORMATION
  Report Type: 
  Country: None (occurrence: None)
  Receive Date: 20101022
  Receipt Date: 20101019
  Transmission Date: 20110411
  Serious: Yes (Death)
  Sender: FDA-Public Use
  Company Number: PHHY2010BR70202

PATIENT
  Sex: Male
  Weight: 80 kg

DRUGS (1)
  1. EXELON [Suspect]
     Dosage: 9MG/5CM2 30 SIST (PATCH)
     Route: 062

REACTIONS (2)
  - CARDIO-RESPIRATORY ARREST [None]
  - PNEUMONIA [None]
